FAERS Safety Report 6694134-9 (Version None)
Quarter: 2010Q2

REPORT INFORMATION
  Report Type: 
  Country: None (occurrence: None)
  Receive Date: 20100423
  Receipt Date: 20090507
  Transmission Date: 20101027
  Serious: No
  Sender: FDA-Public Use
  Company Number: A0782994A

PATIENT
  Age: 57 Year
  Sex: Female

DRUGS (12)
  1. FLOVENT [Suspect]
     Indication: ASTHMA
     Dosage: 220MCG TWICE PER DAY
     Route: 055
     Dates: start: 20090507
  2. ADVAIR DISKUS 100/50 [Suspect]
     Indication: ASTHMA
     Route: 055
     Dates: start: 20060201, end: 20090301
  3. ASTELIN [Concomitant]
  4. RHINOCORT [Concomitant]
  5. VERAPAMIL [Concomitant]
  6. SPIRONOLACTONE [Concomitant]
  7. OMEPRAZOLE [Concomitant]
  8. SYNTHROID [Concomitant]
  9. SINGULAIR [Concomitant]
  10. MUCINEX [Concomitant]
  11. DIOVAN [Concomitant]
  12. FEXOFENADINE [Concomitant]

REACTIONS (3)
  - DYSPHONIA [None]
  - PARAESTHESIA ORAL [None]
  - THROAT IRRITATION [None]
